FAERS Safety Report 21230461 (Version 2)
Quarter: 2022Q3

REPORT INFORMATION
  Report Type: Spontaneous
  Country: CH (occurrence: CH)
  Receive Date: 20220818
  Receipt Date: 20220902
  Transmission Date: 20221026
  Serious: Yes (Hospitalization)
  Sender: FDA-Public Use
  Company Number: CH-TEVA-2022-CH-2064421

PATIENT
  Age: 35 Year
  Sex: Female

DRUGS (11)
  1. LOPERAMIDE [Suspect]
     Active Substance: LOPERAMIDE
     Indication: Diarrhoea
     Dosage: PRN PRESCRIPTION
     Route: 065
  2. LOPERAMIDE [Suspect]
     Active Substance: LOPERAMIDE
     Dosage: AT THE AGE OF 35, HER LOPERAMIDE CONSUMPTION BECAME DAILY
     Route: 065
  3. LOPERAMIDE [Suspect]
     Active Substance: LOPERAMIDE
     Dosage: 40 MILLIGRAM DAILY; HER AVERAGE CONSUMPTION OF LOPERAMIDE HAD INCREASED TO 40 MG/D AT THE AGE OF 37
     Route: 065
  4. LOPERAMIDE [Suspect]
     Active Substance: LOPERAMIDE
     Dosage: 60 MILLIGRAM DAILY; PROGRESSIVE INCREASE TO 60 MG/D
     Route: 065
  5. XYLOMETAZOLINE [Suspect]
     Active Substance: XYLOMETAZOLINE
     Indication: Rhinorrhoea
     Dosage: 10 ML DAILY; SPRAY
     Route: 045
  6. VENLAFAXINE [Suspect]
     Active Substance: VENLAFAXINE HYDROCHLORIDE
     Indication: Depression
     Route: 065
  7. ESCITALOPRAM [Suspect]
     Active Substance: ESCITALOPRAM OXALATE
     Indication: Depression
     Route: 065
  8. CITALOPRAM [Suspect]
     Active Substance: CITALOPRAM HYDROBROMIDE
     Indication: Depression
     Route: 065
  9. MORPHINE [Suspect]
     Active Substance: MORPHINE
     Indication: Substance use disorder
     Dosage: 30 MILLIGRAM DAILY; CONTROLLED RELEASE
     Route: 048
  10. MORPHINE [Suspect]
     Active Substance: MORPHINE
     Dosage: 90 MILLIGRAM DAILY; PROGRESSIVELY INCREASED TO 90 MG/D AFTER 2 MONTHS, CONTROLLED RELEASE
     Route: 048
  11. CLORAZEPATE DIPOTASSIUM [Concomitant]
     Active Substance: CLORAZEPATE DIPOTASSIUM
     Indication: Anxiety
     Dosage: 10 MILLIGRAM DAILY;
     Route: 065

REACTIONS (10)
  - Irritability [Not Recovered/Not Resolved]
  - Mydriasis [Unknown]
  - Rhinorrhoea [Unknown]
  - Diarrhoea [Recovered/Resolved]
  - Substance use disorder [Recovered/Resolved]
  - Drug withdrawal syndrome [Not Recovered/Not Resolved]
  - Drug dependence [Unknown]
  - Intentional product misuse [Unknown]
  - Drug abuse [Unknown]
  - Treatment noncompliance [Unknown]
